FAERS Safety Report 23591728 (Version 1)
Quarter: 2024Q1

REPORT INFORMATION
  Report Type: Spontaneous
  Country: US (occurrence: US)
  Receive Date: 20240304
  Receipt Date: 20240304
  Transmission Date: 20240410
  Serious: Yes (Other)
  Sender: FDA-Public Use
  Company Number: US-SANOFI-01959827

PATIENT
  Age: 68 Year
  Sex: Female
  Weight: 79.3 kg

DRUGS (18)
  1. DUPIXENT [Suspect]
     Active Substance: DUPILUMAB
     Indication: Asthma
     Dosage: 300 MG, QOW
     Route: 058
  2. DILTIAZEM [Concomitant]
     Active Substance: DILTIAZEM
  3. POTASSIUM CHLORIDE [Concomitant]
     Active Substance: POTASSIUM CHLORIDE
  4. NITROGLYCERIN [Concomitant]
     Active Substance: NITROGLYCERIN
  5. OXYGEN [Concomitant]
     Active Substance: OXYGEN
  6. CHLORTHALIDONE [Concomitant]
     Active Substance: CHLORTHALIDONE
  7. EPINEPHRINE [Concomitant]
     Active Substance: EPINEPHRINE
  8. BREO ELLIPTA [Concomitant]
     Active Substance: FLUTICASONE FUROATE\VILANTEROL TRIFENATATE
  9. VITAMIN D3 [Concomitant]
     Active Substance: CHOLECALCIFEROL
  10. MELOXICAM [Concomitant]
     Active Substance: MELOXICAM
  11. FISH OIL [Concomitant]
     Active Substance: FISH OIL
  12. MAGNESIUM [Concomitant]
     Active Substance: MAGNESIUM
  13. PROBIOTICS NOS [Concomitant]
     Active Substance: PROBIOTICS NOS
  14. PREDNISONE [Concomitant]
     Active Substance: PREDNISONE
  15. OMEPRAZOLE [Concomitant]
     Active Substance: OMEPRAZOLE
  16. MONTELUKAST SODIUM [Concomitant]
     Active Substance: MONTELUKAST SODIUM
  17. ELIQUIS [Concomitant]
     Active Substance: APIXABAN
  18. LIPITOR [Concomitant]
     Active Substance: ATORVASTATIN CALCIUM

REACTIONS (6)
  - Diabetes mellitus [Unknown]
  - Skin mass [Unknown]
  - Lung disorder [Unknown]
  - Joint swelling [Unknown]
  - Erythema [Unknown]
  - Injection site pain [Unknown]
